FAERS Safety Report 9912785 (Version 1)
Quarter: 2014Q1

REPORT INFORMATION
  Report Type: Spontaneous
  Country: JP (occurrence: None)
  Receive Date: 20140212
  Receipt Date: 20140212
  Transmission Date: 20141002
  Serious: Yes (Other)
  Sender: FDA-Public Use
  Company Number: SYM-2014-17015

PATIENT
  Sex: 0

DRUGS (3)
  1. FLUOROURACIL [Suspect]
     Indication: COLORECTAL CANCER
  2. OXALIPLATIN [Suspect]
     Indication: COLORECTAL CANCER
     Dosage: 85 MG/M2, EVERY OTHER WEEK, INTRAVENOUS BOLUS
  3. LEUCOVORIN [Suspect]
     Indication: COLORECTAL CANCER
     Dosage: 250 MG/M2, EVERY OTHER WEEK

REACTIONS (2)
  - Neuropathy peripheral [None]
  - Bone marrow failure [None]
